FAERS Safety Report 16685677 (Version 4)
Quarter: 2020Q4

REPORT INFORMATION
  Report Type: Spontaneous
  Country: US (occurrence: US)
  Receive Date: 20190809
  Receipt Date: 20201027
  Transmission Date: 20210113
  Serious: Yes (Hospitalization, Other)
  Sender: FDA-Public Use
  Company Number: US-SA-2019SA212350

PATIENT

DRUGS (2)
  1. DUPIXENT [Suspect]
     Active Substance: DUPILUMAB
     Dosage: 300 MG, QOW
     Route: 058
     Dates: start: 20200226
  2. DUPIXENT [Suspect]
     Active Substance: DUPILUMAB
     Indication: DERMATITIS ATOPIC
     Dosage: 300 MG, QOW
     Route: 058

REACTIONS (9)
  - Mammoplasty [Recovering/Resolving]
  - Phlebectomy [Recovering/Resolving]
  - Product dose omission issue [Unknown]
  - Gastric bypass [Recovering/Resolving]
  - Rash [Unknown]
  - Cataract [Unknown]
  - Post procedural pruritus [Recovering/Resolving]
  - Skin operation [Unknown]
  - Postoperative wound infection [Recovering/Resolving]

NARRATIVE: CASE EVENT DATE: 2019
